FAERS Safety Report 16531294 (Version 3)
Quarter: 2019Q4

REPORT INFORMATION
  Report Type: Spontaneous
  Country: HU (occurrence: HU)
  Receive Date: 20190705
  Receipt Date: 20191018
  Transmission Date: 20200122
  Serious: Yes (Life-Threatening, Hospitalization, Other)
  Sender: FDA-Public Use
  Company Number: HU-PFIZER INC-2019282780

PATIENT
  Age: 66 Year
  Sex: Female

DRUGS (26)
  1. TEICOPLANIN [Suspect]
     Active Substance: TEICOPLANIN
     Dosage: 2X400 MG
     Route: 042
     Dates: start: 20181222, end: 20181228
  2. METHYLPREDNISOLONE. [Suspect]
     Active Substance: METHYLPREDNISOLONE
     Dosage: 60 MG, DAILY FOR 3 DAYS
  3. METHYLPREDNISOLONE. [Suspect]
     Active Substance: METHYLPREDNISOLONE
     Dosage: UNK
     Dates: end: 20190121
  4. TIGECYCLINE. [Suspect]
     Active Substance: TIGECYCLINE
     Dosage: 100 MG, 1X/DAY
     Route: 042
     Dates: start: 20180128, end: 20190204
  5. MOXIFLOXACIN. [Suspect]
     Active Substance: MOXIFLOXACIN
     Dosage: 400 MG, DAILY
     Route: 042
     Dates: start: 20181123, end: 20181127
  6. METRONIDAZOLE. [Suspect]
     Active Substance: METRONIDAZOLE
     Dosage: 500 MG, 2X/DAY
     Route: 042
     Dates: start: 20181205, end: 20181221
  7. CEFTRIAXONE. [Suspect]
     Active Substance: CEFTRIAXONE
     Dosage: 2 G, DAILY
     Route: 042
     Dates: start: 20181203, end: 20181226
  8. MEROPENEM. [Suspect]
     Active Substance: MEROPENEM
     Dosage: 1 G, 3X/DAY
     Route: 042
     Dates: start: 20190111, end: 20190121
  9. METHOTREXATE. [Suspect]
     Active Substance: METHOTREXATE
     Dosage: 7.5 MG, DAILY
     Route: 048
     Dates: start: 20190104, end: 20190607
  10. METHYLPREDNISOLONE. [Suspect]
     Active Substance: METHYLPREDNISOLONE
     Dosage: 80 MG, FOR 2 DAYS
     Route: 048
     Dates: start: 20181120
  11. METHYLPREDNISOLONE SODIUM SUCCINATE. [Suspect]
     Active Substance: METHYLPREDNISOLONE SODIUM SUCCINATE
     Indication: RASH
     Dosage: 125 MG, UNK
     Route: 051
     Dates: end: 20181207
  12. CLARITHROMYCIN. [Suspect]
     Active Substance: CLARITHROMYCIN
     Dosage: 2X500 MG
     Route: 048
     Dates: start: 20181120, end: 20181123
  13. MALTOFER FOL [Suspect]
     Active Substance: FOLIC ACID\IRON POLYMALTOSE
     Indication: IRON DEFICIENCY ANAEMIA
     Dosage: 2X1 TBL
     Route: 048
     Dates: start: 20181220, end: 20190116
  14. COLISTIN [Suspect]
     Active Substance: COLISTIN
     Dosage: 3X2 MIU THEN 2X2 MIU ADJUSTED TO RENAL FUNCTION
     Route: 042
     Dates: start: 20181228, end: 20190103
  15. TIGECYCLINE. [Suspect]
     Active Substance: TIGECYCLINE
     Dosage: 100 MG, 1X/DAY
     Route: 042
     Dates: start: 20190218, end: 20190225
  16. TIGECYCLINE. [Suspect]
     Active Substance: TIGECYCLINE
     Dosage: 50 MG, 2X/DAY
  17. ANIDULAFUNGIN [Suspect]
     Active Substance: ANIDULAFUNGIN
     Indication: FEBRILE NEUTROPENIA
     Dosage: 200 MG, 1X/DAY
     Route: 042
     Dates: start: 20190113, end: 20190121
  18. MEROPENEM. [Suspect]
     Active Substance: MEROPENEM
     Dosage: 2X500 MG
     Dates: start: 20181225, end: 20181228
  19. ACETYLSALICYLIC ACID [Suspect]
     Active Substance: ASPIRIN
     Dosage: 100 MG, DAILY 4 TIMES IN TOTAL
     Route: 048
     Dates: start: 20181109, end: 20181119
  20. METHYLPREDNISOLONE. [Suspect]
     Active Substance: METHYLPREDNISOLONE
     Indication: RASH
     Dosage: 20 MG, DAILY FOR 3 DAYS
     Route: 048
     Dates: start: 20181114
  21. ANIDULAFUNGIN [Suspect]
     Active Substance: ANIDULAFUNGIN
     Dosage: 100 MG, 1X/DAY
  22. VANCOMYCIN [Suspect]
     Active Substance: VANCOMYCIN
     Dosage: 500 MG, DAILY
     Route: 042
     Dates: start: 20181203, end: 20181213
  23. COLISTIN [Suspect]
     Active Substance: COLISTIN
     Dosage: 3X2 MILLION IU
     Route: 042
     Dates: start: 20190114, end: 20190208
  24. COLISTIN [Suspect]
     Active Substance: COLISTIN
     Dosage: 2X1 MILLION IU
     Dates: start: 20190221, end: 20190225
  25. PENTAGLOBIN [Suspect]
     Active Substance: HUMAN IMMUNOGLOBULIN G
     Dosage: 0.5 G/KG IN IV PERFUSOR CONTINUOUSLY
     Route: 042
     Dates: start: 20181204, end: 20181207
  26. PENTAGLOBIN [Suspect]
     Active Substance: HUMAN IMMUNOGLOBULIN G
     Dosage: 0.5 G/KG IN PERFUSOR
     Dates: start: 20190111, end: 20190114

REACTIONS (10)
  - Haemostasis [Recovered/Resolved]
  - Anaemia [Recovered/Resolved]
  - Morganella infection [Recovered/Resolved]
  - Neutropenia [Recovered/Resolved]
  - Vomiting [Recovered/Resolved]
  - Wound haemorrhage [Recovered/Resolved]
  - Impaired healing [Recovered/Resolved]
  - Haemodynamic instability [Recovered/Resolved]
  - Thrombocytopenia [Recovered/Resolved]
  - Diarrhoea [Recovered/Resolved]

NARRATIVE: CASE EVENT DATE: 20190104
